FAERS Safety Report 4964509-4 (Version None)
Quarter: 2006Q1

REPORT INFORMATION
  Report Type: 
  Country: None (occurrence: None)
  Receive Date: 20060331
  Receipt Date: 20060317
  Transmission Date: 20060701
  Serious: Yes (Death, Other)
  Sender: FDA-Public Use
  Company Number: 2006-00494

PATIENT
  Age: 64 Year
  Sex: Male

DRUGS (5)
  1. VELCADE [Suspect]
     Indication: LEUKAEMIA PLASMACYTIC
     Dosage: 1.30 MG, INTRAVENOUS
     Route: 042
     Dates: start: 20051229, end: 20060127
  2. THALIDOMIDE [Concomitant]
  3. DEXAMETHASONE [Concomitant]
  4. VALSARTAN [Concomitant]
  5. CIMETIDINE [Concomitant]

REACTIONS (12)
  - DIALYSIS [None]
  - DISEASE PROGRESSION [None]
  - HAEMATOCRIT DECREASED [None]
  - HAEMOGLOBIN DECREASED [None]
  - HYPERKALAEMIA [None]
  - LEUKAEMIA PLASMACYTIC [None]
  - PLATELET COUNT INCREASED [None]
  - PROCEDURAL COMPLICATION [None]
  - RENAL FAILURE [None]
  - STEVENS-JOHNSON SYNDROME [None]
  - SUDDEN DEATH [None]
  - TOXIC EPIDERMAL NECROLYSIS [None]
